FAERS Safety Report 7968750-8 (Version None)
Quarter: 2011Q4

REPORT INFORMATION
  Report Type: 
  Country: None (occurrence: None)
  Receive Date: 20111209
  Receipt Date: 20111130
  Transmission Date: 20120403
  Serious: Yes (Hospitalization, Other)
  Sender: FDA-Public Use
  Company Number: JP-AMGEN-JPNSP2011057554

PATIENT
  Age: 53 Year
  Sex: Female
  Weight: 61.7 kg

DRUGS (3)
  1. METHOTREXATE [Suspect]
     Indication: RHEUMATOID ARTHRITIS
     Dosage: 12.5 MG, WEEKLY
     Route: 048
     Dates: start: 20080801, end: 20100801
  2. ENBREL [Suspect]
     Indication: RHEUMATOID ARTHRITIS
     Dosage: 25 MG, WEEKLY
     Dates: start: 20090121, end: 20100301
  3. FOLIC ACID [Concomitant]
     Indication: PROPHYLAXIS
     Dosage: 1 DF, WEEKLY
     Route: 048
     Dates: end: 20100801

REACTIONS (3)
  - SYSTEMIC LUPUS ERYTHEMATOSUS [None]
  - AUTOIMMUNE HEPATITIS [None]
  - URINARY TRACT INFECTION [None]
